FAERS Safety Report 11720950 (Version 2)
Quarter: 2016Q1

REPORT INFORMATION
  Report Type: Spontaneous
  Country: US (occurrence: US)
  Receive Date: 20151110
  Receipt Date: 20160209
  Transmission Date: 20160525
  Serious: No
  Sender: FDA-Public Use
  Company Number: US-SA-2015SA149922

PATIENT
  Age: 74 Year
  Sex: Male

DRUGS (5)
  1. PRALUENT [Suspect]
     Active Substance: ALIROCUMAB
     Indication: HYPERCHOLESTEROLAEMIA
     Dosage: PRE FILLED PEN
     Route: 065
     Dates: start: 20150905
  2. ZETIA [Concomitant]
     Active Substance: EZETIMIBE
  3. NIACIN. [Concomitant]
     Active Substance: NIACIN
  4. ALIROCUMAB PREFILLED PEN [Concomitant]
     Active Substance: ALIROCUMAB
     Dates: start: 20150905
  5. COLESTIPOL [Concomitant]
     Active Substance: COLESTIPOL

REACTIONS (7)
  - Lethargy [Unknown]
  - Injection site erythema [Not Recovered/Not Resolved]
  - Injection site haemorrhage [Not Recovered/Not Resolved]
  - Fatigue [Unknown]
  - Abdominal discomfort [Not Recovered/Not Resolved]
  - Tenderness [Unknown]
  - Asthenia [Unknown]

NARRATIVE: CASE EVENT DATE: 20150917
